FAERS Safety Report 9121134 (Version 1)
Quarter: 2013Q1

REPORT INFORMATION
  Report Type: Report from Study
  Country: NL (occurrence: NL)
  Receive Date: 20130226
  Receipt Date: 20130226
  Transmission Date: 20140127
  Serious: Yes (Death)
  Sender: FDA-Public Use
  Company Number: NL-ASTRAZENECA-2013SE12557

PATIENT
  Age: 4 Month
  Sex: Female

DRUGS (3)
  1. SYNAGIS [Suspect]
     Indication: HEART DISEASE CONGENITAL
     Dosage: 50 MG, 15 MG/KG MONTHLY
     Route: 030
     Dates: start: 20121115, end: 20121115
  2. SYNAGIS [Suspect]
     Indication: HEART DISEASE CONGENITAL
     Dosage: 15 MG/KG MONTHLY
     Route: 030
     Dates: start: 20130109, end: 20130109
  3. SYNAGIS [Suspect]
     Indication: HEART DISEASE CONGENITAL
     Dosage: 67 MG, 15 MG/KG MONTHLY
     Route: 030
     Dates: start: 20130206

REACTIONS (1)
  - Death [Fatal]
